FAERS Safety Report 7674811-3 (Version None)
Quarter: 2011Q3

REPORT INFORMATION
  Report Type: 
  Country: None (occurrence: None)
  Receive Date: 20110810
  Receipt Date: 20110801
  Transmission Date: 20111222
  Serious: Yes (Other)
  Sender: FDA-Public Use
  Company Number: FR-ROCHE-794800

PATIENT
  Sex: Female

DRUGS (2)
  1. ISOTRETINOIN [Suspect]
     Indication: ACNE
     Dosage: FREQUERNCY: DAILY
     Route: 065
     Dates: start: 20020307, end: 20020607
  2. ISOTRETINOIN [Suspect]
     Dosage: FREQUENCY: DAILY
     Route: 065
     Dates: end: 20030101

REACTIONS (3)
  - ANXIETY [None]
  - DEPRESSION [None]
  - MUCOSAL DRYNESS [None]
